FAERS Safety Report 23678466 (Version 3)
Quarter: 2024Q2

REPORT INFORMATION
  Report Type: Spontaneous
  Country: US (occurrence: US)
  Receive Date: 20240327
  Receipt Date: 20240626
  Transmission Date: 20240715
  Serious: No
  Sender: FDA-Public Use
  Company Number: US-BIOVITRUM-2024-US-004739

PATIENT
  Age: 73 Year
  Sex: Male

DRUGS (6)
  1. VONJO [Suspect]
     Active Substance: PACRITINIB
     Indication: Myeloproliferative neoplasm
     Dosage: 2 TIMES DAILY
     Route: 048
     Dates: start: 20240215
  2. ONDANSETRON HYDROCHLORIDE [Concomitant]
     Active Substance: ONDANSETRON HYDROCHLORIDE
     Indication: Product used for unknown indication
  3. ASPIRIN [Concomitant]
     Active Substance: ASPIRIN
     Indication: Product used for unknown indication
  4. EXCEDRIN EXTRA [Concomitant]
     Indication: Product used for unknown indication
  5. EZETIMIBE [Concomitant]
     Active Substance: EZETIMIBE
     Indication: Product used for unknown indication
  6. METOPROLOL TARTRATE [Concomitant]
     Active Substance: METOPROLOL TARTRATE
     Indication: Product used for unknown indication

REACTIONS (5)
  - Intentional product misuse [Not Recovered/Not Resolved]
  - Fatigue [Unknown]
  - Abdominal discomfort [Unknown]
  - Nausea [Unknown]
  - Gastrointestinal disorder [Unknown]

NARRATIVE: CASE EVENT DATE: 20240215
